FAERS Safety Report 9192437 (Version 3)
Quarter: 2013Q3

REPORT INFORMATION
  Report Type: Report from Study
  Country: US (occurrence: US)
  Receive Date: 20130327
  Receipt Date: 20130828
  Transmission Date: 20140515
  Serious: Yes (Death, Life-Threatening, Hospitalization)
  Sender: FDA-Public Use
  Company Number: US-BAYER-2013-038145

PATIENT
  Age: 60 Year
  Sex: Male
  Weight: 101.68 kg

DRUGS (14)
  1. SORAFENIB (RAF KINASE INHIBITOR) [Suspect]
     Indication: HEPATOCELLULAR CARCINOMA
     Dosage: 200 MG, BID
     Route: 048
     Dates: start: 20121025, end: 20121115
  2. SORAFENIB (RAF KINASE INHIBITOR) [Suspect]
     Indication: HEPATOCELLULAR CARCINOMA
     Dosage: 200 MG, BID
     Route: 048
     Dates: start: 20121203, end: 20121206
  3. TEMSIROLIMUS [Suspect]
     Indication: HEPATOCELLULAR CARCINOMA
     Dosage: 10 MG, WEEKLY
     Route: 042
     Dates: start: 20121025, end: 20121115
  4. TEMSIROLIMUS [Suspect]
     Indication: HEPATOCELLULAR CARCINOMA
     Dosage: 10 MG, WEEKLY
     Route: 042
     Dates: start: 20121203, end: 20121203
  5. CLOBETASOL [Concomitant]
  6. DOXYCYCLINE [Concomitant]
  7. HYDROXIZINE [Concomitant]
  8. LACTULOSE [Concomitant]
  9. LISINOPRIL [Concomitant]
  10. ONDANSETRON [Concomitant]
  11. OXYCODONE [Concomitant]
  12. POTASSIUM [Concomitant]
  13. SODIUM PHOSPHATE MONOBASIC [Concomitant]
  14. PROCHLORPERAZINE [Concomitant]

REACTIONS (2)
  - Septic shock [Fatal]
  - Mesenteric vein thrombosis [Not Recovered/Not Resolved]
